FAERS Safety Report 25812512 (Version 1)
Quarter: 2025Q3

REPORT INFORMATION
  Report Type: Spontaneous
  Country: IN (occurrence: IN)
  Receive Date: 20250917
  Receipt Date: 20250917
  Transmission Date: 20251020
  Serious: Yes (Other)
  Sender: ALEXION PHARMACEUTICALS
  Company Number: IN-ASTRAZENECA-202509GLO012529IN

PATIENT
  Age: 57 Year
  Sex: Male

DRUGS (3)
  1. OSIMERTINIB [Suspect]
     Active Substance: OSIMERTINIB
     Indication: EGFR gene mutation
     Route: 065
  2. CARBOPLATIN [Concomitant]
     Active Substance: CARBOPLATIN
     Indication: Sarcomatoid carcinoma of the lung
  3. PEMETREXED [Concomitant]
     Active Substance: PEMETREXED
     Indication: Sarcomatoid carcinoma of the lung

REACTIONS (2)
  - Metastases to adrenals [Unknown]
  - Malignant neoplasm progression [Unknown]
